FAERS Safety Report 8816924 (Version 1)
Quarter: 2012Q4

REPORT INFORMATION
  Report Type: Spontaneous
  Country: US (occurrence: None)
  Receive Date: 20121002
  Receipt Date: 20121002
  Transmission Date: 20130627
  Serious: Yes (Disabling)
  Sender: FDA-Public Use
  Company Number: None

PATIENT
  Age: 55 Year
  Sex: Female
  Weight: 78.93 kg

DRUGS (2)
  1. SIMVASTATIN [Suspect]
     Indication: HIGH CHOLESTEROL
     Dosage: 20mg 1x po
     Route: 048
     Dates: start: 20101028, end: 20110414
  2. SIMVASTATIN [Suspect]
     Route: 048
     Dates: start: 20110414, end: 20110527

REACTIONS (6)
  - Neuropathy peripheral [None]
  - Myalgia [None]
  - Amnesia [None]
  - Pain in extremity [None]
  - Back pain [None]
  - Bedridden [None]
